FAERS Safety Report 5309836-6 (Version None)
Quarter: 2007Q2

REPORT INFORMATION
  Report Type: 
  Country: None (occurrence: None)
  Receive Date: 20070427
  Receipt Date: 20070417
  Transmission Date: 20071010
  Serious: Yes (Hospitalization, Disabling)
  Sender: FDA-Public Use
  Company Number: IE-AMGEN-UK201225

PATIENT
  Age: 63 Year
  Sex: Male

DRUGS (9)
  1. ARANESP [Suspect]
     Indication: RENAL FAILURE CHRONIC
     Route: 058
     Dates: start: 20061107, end: 20061123
  2. ATENOLOL [Concomitant]
     Route: 065
  3. PREDNISOLONE [Concomitant]
     Route: 065
  4. AZATHIOPRINE [Concomitant]
     Route: 065
  5. RANITIDINE [Concomitant]
     Route: 065
  6. ALFACALCIDOL [Concomitant]
     Route: 065
  7. BUMETANIDE [Concomitant]
     Route: 065
  8. ZANIDIP [Concomitant]
     Route: 065
  9. CLOPIDOGREL [Concomitant]
     Route: 065

REACTIONS (7)
  - ABDOMINAL PAIN [None]
  - ANOREXIA [None]
  - CONSTIPATION [None]
  - EOSINOPHILIA [None]
  - FLATULENCE [None]
  - NAUSEA [None]
  - VOMITING [None]
